FAERS Safety Report 20532002 (Version 1)
Quarter: 2022Q1

REPORT INFORMATION
  Report Type: Report from Study
  Country: US (occurrence: US)
  Receive Date: 20220301
  Receipt Date: 20220301
  Transmission Date: 20220423
  Serious: No
  Sender: FDA-Public Use
  Company Number: US-AMRYT PHARMACEUTICALS DAC-AEGR005253

PATIENT
  Age: 26 Year
  Sex: Female

DRUGS (12)
  1. METRELEPTIN [Suspect]
     Active Substance: METRELEPTIN
     Indication: Lipodystrophy acquired
     Dosage: 2.5 MILLIGRAM, QD
     Dates: start: 20180503, end: 20190509
  2. METRELEPTIN [Suspect]
     Active Substance: METRELEPTIN
     Indication: Acquired lipoatrophic diabetes
     Dosage: 5 MILLIGRAM, QD
     Dates: start: 20190510
  3. ATORVASTATIN [Concomitant]
     Active Substance: ATORVASTATIN
     Indication: Hypertriglyceridaemia
     Dosage: 10 MILLIGRAM, QD
     Route: 048
     Dates: start: 20170713, end: 20180726
  4. ATORVASTATIN [Concomitant]
     Active Substance: ATORVASTATIN
     Dosage: UNK
  5. LOFIBRA [FENOFIBRATE] [Concomitant]
     Indication: Hypertriglyceridaemia
     Dosage: 160 MILLIGRAM, QD
     Route: 048
     Dates: start: 20180809
  6. FERROUS SULFATE [Concomitant]
     Active Substance: FERROUS SULFATE
     Indication: Anaemia
     Dosage: 300 MILLIGRAM, BID
     Route: 048
     Dates: start: 20210810
  7. LEVOTHYROXINE [Concomitant]
     Active Substance: LEVOTHYROXINE
     Indication: Hypothyroidism
     Dosage: 88 MICROGRAM, QD
     Route: 048
     Dates: start: 20150504
  8. MAGNESIUM OXIDE [Concomitant]
     Active Substance: MAGNESIUM OXIDE
     Indication: Blood magnesium decreased
     Dosage: 400 MILLIGRAM X12, QD
     Dates: start: 20150716
  9. XULANE [Concomitant]
     Active Substance: ETHINYL ESTRADIOL\NORELGESTROMIN
     Indication: Contraception
     Dosage: 150-35 MICROGRAM/24HOURS, WEEKLY
     Route: 061
     Dates: start: 20191024
  10. ERGOCALCIFEROL [Concomitant]
     Active Substance: ERGOCALCIFEROL
     Indication: Vitamin D decreased
     Dosage: 5000 INTERNATIONAL UNIT, WEEKLY
     Route: 048
     Dates: start: 2018
  11. CARBAMAZEPINE [Concomitant]
     Active Substance: CARBAMAZEPINE
     Indication: Medulloblastoma
     Dosage: 200 MILLIGRAM, BID
     Route: 048
  12. XULANE [Concomitant]
     Active Substance: ETHINYL ESTRADIOL\NORELGESTROMIN
     Indication: Hypopituitarism
     Dosage: 35 MICROGRAM, QW
     Route: 061
     Dates: start: 20180504

REACTIONS (4)
  - Drug ineffective [Unknown]
  - Hypertriglyceridaemia [Unknown]
  - Condition aggravated [Unknown]
  - Cryptosporidiosis infection [Recovered/Resolved]

NARRATIVE: CASE EVENT DATE: 20210724
